FAERS Safety Report 8517056-7 (Version None)
Quarter: 2012Q3

REPORT INFORMATION
  Report Type: 
  Country: None (occurrence: None)
  Receive Date: 20120706
  Receipt Date: 20120628
  Transmission Date: 20120928
  Serious: Yes (Other)
  Sender: FDA-Public Use
  Company Number: ADR-2012-01199

PATIENT
  Age: 48 Year
  Sex: Female

DRUGS (3)
  1. BACLOFEN [Suspect]
     Indication: SPINAL CORD INJURY
     Dosage: 474.2 MCG/DAY
  2. BACLOFEN [Suspect]
     Indication: MUSCLE SPASTICITY
     Dosage: 474.2 MCG/DAY
  3. MORPHINE SULFATE [Concomitant]

REACTIONS (1)
  - MUSCLE SPASMS [None]
